FAERS Safety Report 10151443 (Version 1)
Quarter: 2014Q2

REPORT INFORMATION
  Report Type: Spontaneous
  Country: FR (occurrence: FR)
  Receive Date: 20140504
  Receipt Date: 20140504
  Transmission Date: 20141212
  Serious: Yes (Other)
  Sender: FDA-Public Use
  Company Number: FR-BRISTOL-MYERS SQUIBB COMPANY-20684858

PATIENT
  Age: 58 Year
  Sex: Male

DRUGS (2)
  1. ABILIFY TABS 30 MG [Suspect]
     Indication: PSYCHOTIC DISORDER
     Route: 048
     Dates: start: 201403
  2. GARDENAL [Concomitant]
     Indication: EPILEPSY

REACTIONS (3)
  - Psychotic disorder [Not Recovered/Not Resolved]
  - Aggression [Not Recovered/Not Resolved]
  - Off label use [Unknown]
